FAERS Safety Report 24873746 (Version 1)
Quarter: 2025Q1

REPORT INFORMATION
  Report Type: Spontaneous
  Country: US (occurrence: None)
  Receive Date: 20250121
  Receipt Date: 20250121
  Transmission Date: 20250409
  Serious: No
  Sender: FDA-CTU
  Company Number: None

PATIENT
  Age: 46 Year
  Sex: Female
  Weight: 45.9 kg

DRUGS (4)
  1. BRIXADI [Suspect]
     Active Substance: BUPRENORPHINE
     Indication: Dependence
     Route: 058
     Dates: start: 20241101, end: 20250117
  2. GABAPENTIN [Concomitant]
     Active Substance: GABAPENTIN
  3. MIRTAZAPINE [Concomitant]
     Active Substance: MIRTAZAPINE
  4. EPHEDRINE SULFATE\GUAIFENESIN [Concomitant]
     Active Substance: EPHEDRINE SULFATE\GUAIFENESIN

REACTIONS (5)
  - Injection site pain [None]
  - Injection site erythema [None]
  - Pain [None]
  - Headache [None]
  - Back pain [None]

NARRATIVE: CASE EVENT DATE: 20250117
